FAERS Safety Report 16531635 (Version 3)
Quarter: 2020Q3

REPORT INFORMATION
  Report Type: Report from Study
  Country: FR (occurrence: FR)
  Receive Date: 20190705
  Receipt Date: 20190926
  Transmission Date: 20201105
  Serious: Yes (Other)
  Sender: FDA-Public Use
  Company Number: FR-PFIZER INC-2019104855

PATIENT
  Age: 58 Year
  Sex: Female
  Weight: 65 kg

DRUGS (8)
  1. TALAZOPARIB. [Suspect]
     Active Substance: TALAZOPARIB
     Dosage: 1 MG, DAILY
     Route: 048
     Dates: start: 20190320
  2. VERATRAN [Concomitant]
     Active Substance: CLOTIAZEPAM
     Indication: DEPRESSION
     Dosage: 1 DF, 1X/DAY
     Dates: start: 20190227
  3. DENOSUMAB [Concomitant]
     Active Substance: DENOSUMAB
     Indication: OSTEOPOROSIS
     Dosage: 30 MG, WEEKLY
     Route: 058
     Dates: start: 201803
  4. VERATRAN [Concomitant]
     Active Substance: CLOTIAZEPAM
     Dosage: 5 MG, DAILY
     Route: 048
     Dates: start: 20190302
  5. AIROMIR [SALBUTAMOL SULFATE] [Concomitant]
     Active Substance: ALBUTEROL SULFATE
     Dosage: UNK UNK, AS NEEDED
     Dates: start: 20190227
  6. CALCIUM [Concomitant]
     Active Substance: CALCIUM
     Indication: MINERAL SUPPLEMENTATION
     Dosage: 1 DF, 1X/DAY
     Route: 048
     Dates: start: 201803
  7. TALAZOPARIB. [Suspect]
     Active Substance: TALAZOPARIB
     Indication: BREAST CANCER
     Dosage: 1 MG, DAILY
     Route: 048
     Dates: start: 20181109, end: 20190304
  8. PARACETAMOL [Concomitant]
     Active Substance: ACETAMINOPHEN
     Dosage: 1 G, UNK (1 TO 4 TIMES PER DAY)
     Route: 048

REACTIONS (6)
  - Anaemia macrocytic [Not Recovered/Not Resolved]
  - Aspartate aminotransferase increased [Recovered/Resolved]
  - Escherichia urinary tract infection [Recovered/Resolved]
  - White blood cell count decreased [Recovered/Resolved]
  - Pneumonia [Unknown]
  - Pyrexia [Recovered/Resolved]

NARRATIVE: CASE EVENT DATE: 20190131
